FAERS Safety Report 12510237 (Version 1)
Quarter: 2016Q2

REPORT INFORMATION
  Report Type: Report from Study
  Country: CA (occurrence: CA)
  Receive Date: 20160629
  Receipt Date: 20160629
  Transmission Date: 20160815
  Serious: Yes (Hospitalization, Other)
  Sender: FDA-Public Use
  Company Number: CA-GILEAD-2016-0215894

PATIENT
  Age: 61 Year
  Sex: Male
  Weight: 94.3 kg

DRUGS (12)
  1. LEDIPASVIR/SOFOSBUVIR [Suspect]
     Active Substance: LEDIPASVIR\SOFOSBUVIR
     Indication: CHRONIC HEPATITIS C
     Dosage: 1 DF, UNK
     Route: 048
     Dates: start: 20160218, end: 20160301
  2. LEDIPASVIR/SOFOSBUVIR [Suspect]
     Active Substance: LEDIPASVIR\SOFOSBUVIR
     Dosage: 1 DF, UNK
     Route: 048
     Dates: start: 201603
  3. TRAZODONE [Concomitant]
     Active Substance: TRAZODONE HYDROCHLORIDE
  4. DOCUSATE [Concomitant]
     Active Substance: DOCUSATE
  5. SYNTHROID [Concomitant]
     Active Substance: LEVOTHYROXINE SODIUM
  6. LANTUS [Concomitant]
     Active Substance: INSULIN GLARGINE
  7. HUMALOG [Concomitant]
     Active Substance: INSULIN LISPRO
  8. BISOPROLOL [Concomitant]
     Active Substance: BISOPROLOL
  9. PERINDOPRIL [Concomitant]
     Active Substance: PERINDOPRIL
  10. FUROSEMIDE. [Concomitant]
     Active Substance: FUROSEMIDE
  11. LINAGLIPTIN [Concomitant]
     Active Substance: LINAGLIPTIN
  12. MORPHINE [Concomitant]
     Active Substance: MORPHINE

REACTIONS (1)
  - Renal failure [Recovered/Resolved]

NARRATIVE: CASE EVENT DATE: 20160301
